FAERS Safety Report 8933269 (Version 1)
Quarter: 2012Q4

REPORT INFORMATION
  Report Type: Report from Study
  Country: KR (occurrence: KR)
  Receive Date: 20121129
  Receipt Date: 20121129
  Transmission Date: 20130627
  Serious: Yes (Hospitalization)
  Sender: FDA-Public Use
  Company Number: PHHO2012KR016659

PATIENT
  Age: 31 Year
  Sex: Female
  Weight: 44.9 kg

DRUGS (11)
  1. NEORAL [Suspect]
     Indication: RENAL TRANSPLANT
     Dosage: 100 mg, BID
     Route: 048
     Dates: start: 20120707, end: 20121105
  2. RAD001 [Suspect]
     Indication: RENAL TRANSPLANT
     Dosage: 1.5 mg, BID
     Route: 048
     Dates: start: 20120713
  3. SYNTHROID [Concomitant]
     Indication: HYPOTHYROIDISM
     Dosage: 100 mg, QD
     Route: 048
  4. VYTORIN [Concomitant]
     Indication: HYPERCHOLESTEROLAEMIA
     Dosage: 100 ug, QD
     Route: 048
     Dates: start: 20120806
  5. TRIDOL [Concomitant]
     Indication: PAIN IN EXTREMITY
     Dosage: 150 mg, TID
     Route: 048
     Dates: start: 20120718
  6. ULCERMIN [Concomitant]
     Indication: DYSPEPSIA
     Dosage: 15 ml, QD
     Route: 048
     Dates: start: 20121031
  7. METHYLONE [Concomitant]
     Indication: TRANSPLANT
     Dosage: 6 mg, QD
     Route: 048
     Dates: start: 20120712
  8. SEPTRIN [Concomitant]
     Indication: PROPHYLAXIS
     Dosage: 1 DF, QD
     Route: 048
     Dates: start: 20120712
  9. LANTUS [Concomitant]
     Indication: DIABETES MELLITUS
     Dosage: prn QD
     Route: 058
     Dates: start: 20120717
  10. APIDRA [Concomitant]
     Indication: DIABETES MELLITUS
     Dosage: prn SC QD
     Dates: start: 20120715
  11. ISOKET [Concomitant]
     Indication: AUTONOMIC NERVOUS SYSTEM IMBALANCE
     Dosage: 120 mg, QD
     Route: 048
     Dates: start: 20120727

REACTIONS (1)
  - Diabetic gastropathy [Not Recovered/Not Resolved]
